FAERS Safety Report 10206080 (Version 1)
Quarter: 2014Q2

REPORT INFORMATION
  Report Type: Spontaneous
  Country: US (occurrence: US)
  Receive Date: 20140530
  Receipt Date: 20140530
  Transmission Date: 20141212
  Serious: No
  Sender: FDA-Public Use
  Company Number: US-PFIZER INC-2014147650

PATIENT
  Age: 39 Year
  Sex: Female
  Weight: 90.7 kg

DRUGS (7)
  1. PRISTIQ [Suspect]
     Indication: MAJOR DEPRESSION
     Dosage: 100 MG, 1X/DAY
     Route: 048
     Dates: start: 201402, end: 2014
  2. LYRICA [Concomitant]
     Dosage: 150 MG, 2X/DAY
  3. AMBIEN [Concomitant]
     Dosage: 10 MG, DAILY AT BED TIME
  4. HYDROCHLOROTHIAZIDE [Concomitant]
     Dosage: 25 MG, 2X/DAY
  5. XANAX [Concomitant]
     Dosage: 0.5 MG, 3X/DAY
  6. WELLBUTRIN SR [Concomitant]
     Dosage: 150 MG, 2X/DAY
  7. HYDROCODONE/ACETAMINOPHEN [Concomitant]
     Dosage: HYDROCODONE 7.5MG/ACETAMINOPHEN 500MG AS NEEDED UP TO THREE TIMES A DAY

REACTIONS (4)
  - Intentional product misuse [Unknown]
  - Feeling abnormal [Unknown]
  - Pain [Unknown]
  - Panic reaction [Unknown]
